FAERS Safety Report 22057447 (Version 2)
Quarter: 2024Q3

REPORT INFORMATION
  Report Type: Report from Study
  Country: US (occurrence: US)
  Receive Date: 20230303
  Receipt Date: 20240822
  Transmission Date: 20241017
  Serious: Yes (Hospitalization)
  Sender: ROCHE
  Company Number: US-ROCHE-3291419

PATIENT
  Age: 52 Year
  Sex: Male
  Weight: 127.01 kg

DRUGS (1)
  1. OCREVUS [Suspect]
     Active Substance: OCRELIZUMAB
     Indication: Primary progressive multiple sclerosis
     Dosage: ONGOING YES
     Route: 042
     Dates: start: 202205

REACTIONS (10)
  - Urinary tract infection [Not Recovered/Not Resolved]
  - COVID-19 [Recovered/Resolved]
  - Bradyphrenia [Not Recovered/Not Resolved]
  - Sepsis [Unknown]
  - Blood follicle stimulating hormone increased [Unknown]
  - Blood luteinising hormone increased [Unknown]
  - Blood prolactin increased [Unknown]
  - Urinary tract infection [Not Recovered/Not Resolved]
  - Escherichia infection [Unknown]
  - Sexual dysfunction [Not Recovered/Not Resolved]

NARRATIVE: CASE EVENT DATE: 20221201
